FAERS Safety Report 5848682-1 (Version None)
Quarter: 2008Q3

REPORT INFORMATION
  Report Type: 
  Country: None (occurrence: None)
  Receive Date: 20080818
  Receipt Date: 20080812
  Transmission Date: 20090109
  Serious: Yes (Life-Threatening)
  Sender: FDA-Public Use
  Company Number: JP-ASTRAZENECA-2008SE03617

PATIENT
  Sex: Female
  Weight: 35 kg

DRUGS (8)
  1. BLOPRESS [Suspect]
     Indication: HYPERTENSION
     Route: 048
     Dates: start: 20080702, end: 20080712
  2. CRAVIT [Suspect]
     Indication: INFECTION
     Route: 048
     Dates: start: 20080707, end: 20080712
  3. FINIBAX(DORIPENEM HYDRATE) [Suspect]
     Indication: INFECTION
     Route: 041
     Dates: start: 20080708, end: 20080712
  4. FAMOTIDINE [Suspect]
     Indication: PROPHYLAXIS AGAINST GASTROINTESTINAL ULCER
     Route: 041
     Dates: start: 20080701, end: 20080701
  5. FAMOTIDINE [Suspect]
     Route: 048
     Dates: start: 20080702, end: 20080712
  6. PERDIPINE [Concomitant]
     Indication: CEREBRAL HAEMORRHAGE
     Route: 041
     Dates: start: 20080701, end: 20080702
  7. CHICHINA [Concomitant]
     Route: 041
     Dates: start: 20080701, end: 20080702
  8. RIKAVARIN [Concomitant]
     Route: 041
     Dates: start: 20080701, end: 20080702

REACTIONS (2)
  - SHOCK [None]
  - THROMBOCYTOPENIA [None]
